FAERS Safety Report 4829945-5 (Version None)
Quarter: 2005Q4

REPORT INFORMATION
  Report Type: 
  Country: None (occurrence: None)
  Receive Date: 20051115
  Receipt Date: 20051115
  Transmission Date: 20060501
  Serious: Yes (Hospitalization)
  Sender: FDA-Public Use
  Company Number: None

PATIENT
  Age: 75 Year
  Sex: Male
  Weight: 85 kg

DRUGS (14)
  1. PENTOSTATIN [Suspect]
     Indication: CHRONIC LYMPHOCYTIC LEUKAEMIA
     Dosage: 4 MG/M2 IV Q 3 WEEKS
     Route: 042
     Dates: start: 20050620, end: 20050711
  2. ALBUTEROL [Concomitant]
  3. LEVOTHYROXINE SODIUM [Concomitant]
  4. SIMVASTATIN [Concomitant]
  5. EPOETIN ALFA RECOMB [Concomitant]
  6. BACTRIM DS [Concomitant]
  7. TYLENOL W/ CODEINE NO. 3 [Concomitant]
  8. BENADRYL [Concomitant]
  9. METOCLOPRAMIDE [Concomitant]
  10. BISACODYL [Concomitant]
  11. FILGRASTIM [Concomitant]
  12. ALLOPURINOL [Concomitant]
  13. RITUXAN [Concomitant]
  14. CYTOXAN [Concomitant]

REACTIONS (1)
  - RENAL FAILURE ACUTE [None]
